FAERS Safety Report 5948738-9 (Version None)
Quarter: 2008Q4

REPORT INFORMATION
  Report Type: 
  Country: None (occurrence: None)
  Receive Date: 20081111
  Receipt Date: 20081103
  Transmission Date: 20090506
  Serious: Yes (Disabling)
  Sender: FDA-Public Use
  Company Number: FR-WYE-G02511308

PATIENT
  Age: 79 Year
  Sex: Female

DRUGS (2)
  1. EFFEXOR [Suspect]
     Dosage: 112.5 MG TOTAL DAILY
     Route: 048
     Dates: end: 20080101
  2. ALCOHOL [Suspect]
     Dosage: UNKNOWN
     Dates: end: 20080101

REACTIONS (4)
  - ALCOHOL WITHDRAWAL SYNDROME [None]
  - BEDRIDDEN [None]
  - DRUG WITHDRAWAL SYNDROME [None]
  - MOBILITY DECREASED [None]
